FAERS Safety Report 4988370-7 (Version None)
Quarter: 2006Q2

REPORT INFORMATION
  Report Type: 
  Country: None (occurrence: None)
  Receive Date: 20060502
  Receipt Date: 20060420
  Transmission Date: 20061013
  Serious: Yes (Death)
  Sender: FDA-Public Use
  Company Number: US-JNJFOC-20050805038

PATIENT
  Sex: Male
  Weight: 89.81 kg

DRUGS (34)
  1. DURAGESIC-100 [Suspect]
     Route: 062
  2. DURAGESIC-100 [Suspect]
     Route: 062
  3. DURAGESIC-100 [Suspect]
     Route: 062
  4. OXYCODONE AND ACETAMINOPHEN [Suspect]
     Route: 048
  5. OXYCODONE AND ACETAMINOPHEN [Suspect]
     Dosage: 5 MG/325 MG, 1 OR 2 TABLETS EVERY FOUR HOURS AS NEEDED
     Route: 048
  6. VALIUM [Concomitant]
     Dosage: 5 MG EVERY 4 TO 6 HOURS AS NEEDED
     Route: 048
  7. SINGULAIR [Concomitant]
     Route: 048
  8. GABAPENTIN [Concomitant]
     Route: 048
  9. MIRAPEX [Concomitant]
     Route: 048
  10. SOMA [Concomitant]
     Route: 048
  11. SONATA [Concomitant]
     Indication: SLEEP DISORDER THERAPY
     Route: 048
  12. ACETAMINOPHEN AND HYDROCODONE BITARTRATE [Concomitant]
     Route: 048
  13. ACETAMINOPHEN AND HYDROCODONE BITARTRATE [Concomitant]
     Dosage: 7.5 MG/650 MG, 10 MG/650 MG AS NEEDED, ORAL
     Route: 048
  14. SYNTHROID [Concomitant]
     Route: 048
  15. FLONASE [Concomitant]
     Dosage: 0.5%, 2 SPRAYS EACH NOSTRIL DAILY, NASAL
     Route: 045
  16. MULTI-VITAMIN [Concomitant]
  17. MULTI-VITAMIN [Concomitant]
  18. MULTI-VITAMIN [Concomitant]
  19. MULTI-VITAMIN [Concomitant]
  20. MULTI-VITAMIN [Concomitant]
  21. MULTI-VITAMIN [Concomitant]
  22. MULTI-VITAMIN [Concomitant]
  23. MULTI-VITAMIN [Concomitant]
     Dosage: DAILY
  24. ZOFRAN [Concomitant]
     Dosage: AS NEEDED
  25. ALLEGRA [Concomitant]
  26. GLUCOSAMINE [Concomitant]
  27. HISTEX [Concomitant]
  28. HISTEX [Concomitant]
  29. HISTEX [Concomitant]
  30. TAMIFLU [Concomitant]
  31. AVELOX [Concomitant]
  32. TYLENOL (CAPLET) [Concomitant]
  33. IBUPROFEN [Concomitant]
  34. MORPHINE SULFATE [Concomitant]
     Indication: PAIN
     Dosage: 4 MG, EVERY 4 TO 6 HOURS AS NEEDED, INTRAMUSCULAR
     Route: 030

REACTIONS (13)
  - ANOXIC ENCEPHALOPATHY [None]
  - BRAIN OEDEMA [None]
  - CARDIO-RESPIRATORY ARREST [None]
  - COMA [None]
  - DRUG TOXICITY [None]
  - HYPERKALAEMIA [None]
  - HYPOXIA [None]
  - ISCHAEMIC HEPATITIS [None]
  - LOBAR PNEUMONIA [None]
  - METABOLIC ACIDOSIS [None]
  - MYOCARDIAL INFARCTION [None]
  - OFF LABEL USE [None]
  - RENAL FAILURE ACUTE [None]
